FAERS Safety Report 7948786-3 (Version None)
Quarter: 2011Q4

REPORT INFORMATION
  Report Type: 
  Country: None (occurrence: None)
  Receive Date: 20111123
  Receipt Date: 20111104
  Transmission Date: 20120403
  Serious: Yes (Hospitalization)
  Sender: FDA-Public Use
  Company Number: 59473

PATIENT
  Age: 48 Year
  Sex: Male

DRUGS (1)
  1. HYLAND'S CALMS FORTE [Suspect]
     Dosage: 2 TABLETS

REACTIONS (5)
  - PHARYNGEAL OEDEMA [None]
  - SWELLING FACE [None]
  - LIP SWELLING [None]
  - LOCAL SWELLING [None]
  - DYSPNOEA [None]
